FAERS Safety Report 7612766-8 (Version None)
Quarter: 2011Q3

REPORT INFORMATION
  Report Type: 
  Country: None (occurrence: None)
  Receive Date: 20110708
  Receipt Date: 20110623
  Transmission Date: 20111222
  Serious: Yes (Other)
  Sender: FDA-Public Use
  Company Number: 2011MA008186

PATIENT
  Age: 28 Year
  Sex: Female

DRUGS (9)
  1. CITALOPRAM HYDROBROMIDE [Suspect]
     Dates: start: 20110511
  2. HYDROMOL [Concomitant]
  3. DOTHIEPIN HYDROCHLORIDE [Concomitant]
  4. FLUOXETINE [Concomitant]
  5. QVAR 40 [Concomitant]
  6. CETIRIZINE HCL [Concomitant]
  7. MOMETASONE FUROATE [Concomitant]
  8. ALBUTEROL [Concomitant]
  9. SERTRALINE HYDROCHLORIDE [Concomitant]

REACTIONS (2)
  - CONTUSION [None]
  - YAWNING [None]
